FAERS Safety Report 8943366 (Version 1)
Quarter: 2012Q4

REPORT INFORMATION
  Report Type: 
  Country: JP (occurrence: JP)
  Receive Date: 20121203
  Receipt Date: 20121203
  Transmission Date: 20130627
  Serious: Yes (Hospitalization)
  Sender: FDA-Public Use
  Company Number: JP-MERCK-1210JPN009301

PATIENT
  Age: 72 Year
  Sex: Male

DRUGS (11)
  1. GASTER [Suspect]
     Indication: PROPHYLAXIS AGAINST GASTROINTESTINAL ULCER
     Dosage: 20 mg, bid
     Route: 048
     Dates: start: 20091102, end: 20121030
  2. NATEGLINIDE [Suspect]
     Indication: DIABETES MELLITUS
     Dosage: 90 mg, tid
     Route: 048
     Dates: start: 20080111
  3. MICOMBI [Suspect]
     Indication: HYPERTENSION
     Dosage: 1 DF, qd
     Route: 048
     Dates: start: 20120806, end: 20121015
  4. ACTOS [Suspect]
     Indication: DIABETES MELLITUS
     Dosage: 30 mg, qd
     Route: 048
     Dates: start: 20080419, end: 20121030
  5. BASEN [Concomitant]
     Indication: DIABETES MELLITUS
     Dosage: UNK
     Dates: start: 20070908
  6. CRESTOR [Concomitant]
     Indication: DYSLIPIDAEMIA
     Dosage: UNK
     Dates: start: 20070908
  7. WARFARIN POTASSIUM [Concomitant]
     Indication: ATRIAL FIBRILLATION
     Dosage: UNK
     Dates: start: 20070915
  8. NORVASC [Concomitant]
     Indication: HYPERTENSION
     Dosage: UNK
     Route: 048
     Dates: start: 20120806
  9. MICARDIS [Concomitant]
     Indication: HYPERTENSION
     Dosage: UNK
     Dates: start: 20080111, end: 20120521
  10. MICAMLO [Concomitant]
     Indication: HYPERTENSION
     Dosage: UNK
     Route: 048
     Dates: start: 20120521, end: 20120806
  11. AMLODIPINE [Concomitant]
     Dosage: UNK
     Dates: start: 2012

REACTIONS (2)
  - Interstitial lung disease [Recovering/Resolving]
  - Mycoplasma infection [Recovering/Resolving]
